FAERS Safety Report 9317981 (Version 1)
Quarter: 2013Q2

REPORT INFORMATION
  Report Type: Spontaneous
  Country: US (occurrence: None)
  Receive Date: 20130524
  Receipt Date: 20130524
  Transmission Date: 20140414
  Serious: Yes (Other)
  Sender: FDA-Public Use
  Company Number: 2013AP005246

PATIENT
  Age: 78 Year
  Sex: Female

DRUGS (3)
  1. PAROXETINE [Suspect]
     Indication: DEPRESSION
     Route: 048
     Dates: start: 20130319, end: 20130320
  2. BISOPROLOL FUMARATE [Concomitant]
  3. PERINDOPRIL ARGININE [Concomitant]

REACTIONS (2)
  - Asthenia [None]
  - Hypertensive crisis [None]
